FAERS Safety Report 5087077-8 (Version None)
Quarter: 2006Q3

REPORT INFORMATION
  Report Type: 
  Country: None (occurrence: None)
  Receive Date: 20060821
  Receipt Date: 20060803
  Transmission Date: 20061208
  Serious: Yes (Other)
  Sender: FDA-Public Use
  Company Number: 2006098515

PATIENT
  Age: 33 Year
  Sex: Male

DRUGS (2)
  1. ZYRTEC [Suspect]
     Indication: HYPERSENSITIVITY
     Dosage: 10 MG (10 MG,1 IN 1 D)
     Dates: start: 20060801, end: 20060803
  2. PREDNISOLONE [Concomitant]

REACTIONS (4)
  - ACCIDENTAL OVERDOSE [None]
  - DRUG DISPENSING ERROR [None]
  - INSOMNIA [None]
  - THIRST [None]
